FAERS Safety Report 5491530-2 (Version None)
Quarter: 2007Q4

REPORT INFORMATION
  Report Type: 
  Country: None (occurrence: None)
  Receive Date: 20071022
  Receipt Date: 20071012
  Transmission Date: 20080405
  Serious: Yes (Hospitalization)
  Sender: FDA-Public Use
  Company Number: PHEH2007US13590

PATIENT
  Age: 46 Year
  Sex: Female

DRUGS (10)
  1. NEORAL [Suspect]
     Indication: RENAL TRANSPLANT
     Dosage: 400 MG, QD
     Route: 048
     Dates: start: 20070430
  2. CELLCEPT [Suspect]
     Indication: RENAL TRANSPLANT
     Dosage: 1000 MG, QD
     Route: 048
     Dates: start: 20070426, end: 20070615
  3. SIROLIMUS [Concomitant]
  4. AZATHIOPRINE [Concomitant]
  5. METHYLPREDNISOLONE [Concomitant]
  6. PANTOPRAZOLE SODIUM [Concomitant]
  7. ACETYLSALICYLIC ACID [Concomitant]
  8. SULFAMETHOXAZOLE/TRIMETHOPRIM ^DAK^ [Concomitant]
  9. PROMETHAZINE HCL [Concomitant]
  10. GANCICLOVIR [Concomitant]

REACTIONS (6)
  - ABDOMINAL PAIN UPPER [None]
  - CLOSTRIDIAL INFECTION [None]
  - GASTRITIS [None]
  - NAUSEA [None]
  - SMALL INTESTINAL OBSTRUCTION [None]
  - VOMITING [None]
